FAERS Safety Report 7725952-3 (Version None)
Quarter: 2011Q4

REPORT INFORMATION
  Report Type: 
  Country: None (occurrence: None)
  Receive Date: 20110831
  Receipt Date: 20110811
  Transmission Date: 20120403
  Serious: Yes (Hospitalization)
  Sender: FDA-Public Use
  Company Number: JP-20110028

PATIENT
  Age: 79 Year
  Sex: Male

DRUGS (3)
  1. EPIRUBICIN HYDROCHLORIDE [Suspect]
     Indication: PRODUCT USED FOR UNKNOWN INDICATION
     Dates: start: 20110414, end: 20110512
  2. VOLTARE SR (DICLOFENAC) [Concomitant]
  3. ETHIODIZED OIL [Suspect]
     Indication: THERAPEUTIC EMBOLISATION
     Dosage: INTRA-ARTERIAL
     Route: 013
     Dates: start: 20110414, end: 20110414

REACTIONS (5)
  - TUMOUR LYSIS SYNDROME [None]
  - BLOOD UREA INCREASED [None]
  - BLOOD CREATININE INCREASED [None]
  - OLIGURIA [None]
  - OFF LABEL USE [None]
